FAERS Safety Report 6426594-2 (Version None)
Quarter: 2009Q4

REPORT INFORMATION
  Report Type: 
  Country: None (occurrence: None)
  Receive Date: 20091016
  Receipt Date: 20090505
  Transmission Date: 20100525
  Serious: Yes (Other)
  Sender: FDA-Public Use
  Company Number: 59937

PATIENT
  Age: 77 Year
  Sex: Male
  Weight: 63 kg

DRUGS (1)
  1. LEUCOVORIN CALCIUM [Suspect]
     Indication: COLORECTAL CANCER METASTATIC
     Dosage: 40MG/M2
     Dates: start: 20090420

REACTIONS (4)
  - DIARRHOEA [None]
  - DYSPNOEA [None]
  - MUCOSAL INFLAMMATION [None]
  - STOMATITIS [None]
